FAERS Safety Report 24903371 (Version 1)
Quarter: 2025Q1

REPORT INFORMATION
  Report Type: Spontaneous
  Country: CA (occurrence: CA)
  Receive Date: 20250130
  Receipt Date: 20250130
  Transmission Date: 20250409
  Serious: Yes (Death)
  Sender: CSL BEHRING
  Company Number: CA-BEH-2025193639

PATIENT
  Age: 68 Year
  Sex: Male
  Weight: 63 kg

DRUGS (3)
  1. HUMAN IMMUNOGLOBULIN G [Suspect]
     Active Substance: HUMAN IMMUNOGLOBULIN G
     Indication: Secondary immunodeficiency
     Route: 065
  2. HUMAN IMMUNOGLOBULIN G [Suspect]
     Active Substance: HUMAN IMMUNOGLOBULIN G
     Route: 058
  3. HUMAN IMMUNOGLOBULIN G [Suspect]
     Active Substance: HUMAN IMMUNOGLOBULIN G
     Dosage: 6 G, QW
     Route: 058

REACTIONS (4)
  - Diarrhoea [Fatal]
  - Fall [Fatal]
  - Infusion site erythema [Fatal]
  - Off label use [Unknown]
